FAERS Safety Report 7974268-9 (Version None)
Quarter: 2011Q4

REPORT INFORMATION
  Report Type: 
  Country: None (occurrence: None)
  Receive Date: 20111209
  Receipt Date: 20111201
  Transmission Date: 20120403
  Serious: Yes (Other)
  Sender: FDA-Public Use
  Company Number: 2011MA017135

PATIENT
  Sex: Male

DRUGS (1)
  1. METOCLOPRAMIDE [Suspect]
     Dosage: ;UNK;PO
     Route: 048
     Dates: start: 19920101, end: 20100801

REACTIONS (3)
  - TARDIVE DYSKINESIA [None]
  - TREMOR [None]
  - FAMILY STRESS [None]
